FAERS Safety Report 6958534-1 (Version None)
Quarter: 2010Q3

REPORT INFORMATION
  Report Type: 
  Country: None (occurrence: None)
  Receive Date: 20100831
  Receipt Date: 20100826
  Transmission Date: 20110219
  Serious: Yes (Hospitalization)
  Sender: FDA-Public Use
  Company Number: IT-ROCHE-723469

PATIENT
  Sex: Female

DRUGS (1)
  1. KETOROLAC [Suspect]
     Indication: PRODUCT USED FOR UNKNOWN INDICATION
     Dosage: ROUTE, DOSE, FORM AND FREQUENCY NOT PROVIDED
     Route: 065

REACTIONS (4)
  - DYSHIDROSIS [None]
  - DYSPHONIA [None]
  - GENERALISED ERYTHEMA [None]
  - PRURITUS [None]
